FAERS Safety Report 10296908 (Version 4)
Quarter: 2014Q3

REPORT INFORMATION
  Report Type: Spontaneous
  Country: US (occurrence: None)
  Receive Date: 20140708
  Receipt Date: 20140904
  Transmission Date: 20150326
  Serious: Yes (Other)
  Sender: FDA-Public Use
  Company Number: 2014SA083163

PATIENT
  Age: 57 Year
  Sex: Female
  Weight: 86.2 kg

DRUGS (1)
  1. ICY HOT ARM NECK LEG AND SMALL AREAS [Suspect]
     Active Substance: MENTHOL
     Indication: BACK PAIN
     Dates: start: 20140617, end: 20140617

REACTIONS (3)
  - Application site burn [None]
  - Application site pain [None]
  - Application site erythema [None]

NARRATIVE: CASE EVENT DATE: 20140617
